FAERS Safety Report 5645693-6 (Version None)
Quarter: 2008Q1

REPORT INFORMATION
  Report Type: 
  Country: None (occurrence: None)
  Receive Date: 20080229
  Receipt Date: 20080222
  Transmission Date: 20080703
  Serious: Yes (Congenital Anomaly)
  Sender: FDA-Public Use
  Company Number: US-BOEHRINGER INGELHEIM GMBH, GERMANY-2007-BP-26966BP

PATIENT
  Sex: Female
  Weight: 2 kg

DRUGS (5)
  1. VIRAMUNE [Suspect]
     Indication: HIV INFECTION
     Route: 015
     Dates: start: 20070529, end: 20071022
  2. ATRIPLA [Suspect]
     Indication: HIV INFECTION
     Dosage: EFAVIRENZ 600MG/FTC 200MG/TDF 300MG
     Route: 015
     Dates: start: 20061210, end: 20070529
  3. TRUVADA [Suspect]
     Indication: HIV INFECTION
     Dosage: FTC 200 MG/ TDF 300MG
     Route: 015
     Dates: start: 20070529, end: 20071022
  4. KALETRA [Suspect]
     Indication: HIV INFECTION
     Dosage: LPV/RTV 800/200 MG
     Route: 015
     Dates: start: 20071023, end: 20071205
  5. TRIZIVIR [Suspect]
     Indication: HIV INFECTION
     Dosage: ABC 300MG/LMV 150MG/ZVD 300MG
     Route: 015
     Dates: start: 20071023, end: 20071205

REACTIONS (4)
  - DRUG EXPOSURE DURING PREGNANCY [None]
  - HIP DYSPLASIA [None]
  - PREMATURE BABY [None]
  - TWIN PREGNANCY [None]
